FAERS Safety Report 24857215 (Version 3)
Quarter: 2025Q1

REPORT INFORMATION
  Report Type: Spontaneous
  Country: JP (occurrence: JP)
  Receive Date: 20250117
  Receipt Date: 20250318
  Transmission Date: 20250409
  Serious: Yes (Other)
  Sender: UCB
  Company Number: JP-UCBJ-CD202500250UCBPHAPROD

PATIENT
  Age: 13 Year
  Sex: Male

DRUGS (6)
  1. LEVETIRACETAM [Suspect]
     Active Substance: LEVETIRACETAM
     Indication: Epilepsy
     Route: 048
  2. AZITHROMYCIN [Concomitant]
     Active Substance: AZITHROMYCIN
     Indication: Mycoplasma infection
  3. AMOXICILLIN [Concomitant]
     Active Substance: AMOXICILLIN
     Indication: Mycoplasma infection
  4. LEVOFLOXACIN HEMIHYDRATE [Concomitant]
     Active Substance: LEVOFLOXACIN
     Indication: Mycoplasma infection
  5. METHYLPREDNISOLONE [Concomitant]
     Active Substance: METHYLPREDNISOLONE
     Indication: Product used for unknown indication
  6. PREDNISOLONE [Concomitant]
     Active Substance: PREDNISOLONE
     Indication: Product used for unknown indication

REACTIONS (9)
  - Acute hepatic failure [Unknown]
  - Cytomegalovirus enterocolitis [Recovered/Resolved]
  - Mycoplasma infection [Recovered/Resolved]
  - CD8 lymphocytes increased [Unknown]
  - Plasmapheresis [Unknown]
  - Pyrexia [Unknown]
  - Erythema [Unknown]
  - Nausea [Unknown]
  - Diarrhoea [Unknown]
